FAERS Safety Report 5636023-4 (Version None)
Quarter: 2008Q1

REPORT INFORMATION
  Report Type: 
  Country: None (occurrence: None)
  Receive Date: 20080220
  Receipt Date: 20080220
  Transmission Date: 20080703
  Serious: No
  Sender: FDA-Public Use
  Company Number: None

PATIENT
  Age: 13 Year
  Sex: Male
  Weight: 85.7298 kg

DRUGS (1)
  1. ABILIFY [Suspect]
     Indication: ASPERGER'S DISORDER
     Dosage: 1 TAB EVERY NIGHT
     Dates: start: 20071201, end: 20080219

REACTIONS (4)
  - AGGRESSION [None]
  - BREAST DISORDER [None]
  - HUNGER [None]
  - WEIGHT INCREASED [None]
